FAERS Safety Report 17108947 (Version 11)
Quarter: 2024Q3

REPORT INFORMATION
  Report Type: Report from Study
  Country: US (occurrence: US)
  Receive Date: 20191204
  Receipt Date: 20240812
  Transmission Date: 20241017
  Serious: Yes (Hospitalization, Other)
  Sender: ROCHE
  Company Number: US-ROCHE-2325455

PATIENT
  Age: 58 Year
  Sex: Male
  Weight: 131.54 kg

DRUGS (36)
  1. OCREVUS [Suspect]
     Active Substance: OCRELIZUMAB
     Indication: Secondary progressive multiple sclerosis
     Dosage: HALF DOSES?SECOND HALF DOSE RECEIVED ON 18/DEC/2018
     Route: 042
     Dates: start: 20181204, end: 20181218
  2. OCREVUS [Suspect]
     Active Substance: OCRELIZUMAB
     Indication: Relapsing multiple sclerosis
     Route: 042
     Dates: start: 201912
  3. OCREVUS [Suspect]
     Active Substance: OCRELIZUMAB
     Indication: Primary progressive multiple sclerosis
     Route: 042
     Dates: start: 20181204, end: 20200709
  4. OCREVUS [Suspect]
     Active Substance: OCRELIZUMAB
     Route: 042
     Dates: start: 2018, end: 2021
  5. VOLTAREN [Suspect]
     Active Substance: DICLOFENAC SODIUM
     Indication: Neuralgia
     Route: 065
     Dates: start: 2018
  6. VOLTAREN [Suspect]
     Active Substance: DICLOFENAC SODIUM
     Route: 061
  7. SOLU-MEDROL [Suspect]
     Active Substance: METHYLPREDNISOLONE SODIUM SUCCINATE
     Indication: Product used for unknown indication
     Route: 042
  8. LYRICA [Suspect]
     Active Substance: PREGABALIN
     Indication: Neuralgia
     Route: 048
  9. LYRICA [Suspect]
     Active Substance: PREGABALIN
     Route: 065
     Dates: start: 202011
  10. OMEPRAZOLE [Concomitant]
     Active Substance: OMEPRAZOLE
     Indication: Gastrooesophageal reflux disease
     Dosage: TAKES AT 5 PM
     Route: 048
  11. OMEPRAZOLE [Concomitant]
     Active Substance: OMEPRAZOLE
     Route: 048
  12. XARELTO [Concomitant]
     Active Substance: RIVAROXABAN
     Indication: Deep vein thrombosis
     Dosage: TAKES 5 PM
     Route: 048
  13. XARELTO [Concomitant]
     Active Substance: RIVAROXABAN
     Indication: Anticoagulant therapy
  14. VENTOLIN HFA [Concomitant]
     Active Substance: ALBUTEROL SULFATE
     Indication: Asthma
     Dosage: 2 PUFFS 4 TIMES DAILY
     Route: 055
  15. VENTOLIN HFA [Concomitant]
     Active Substance: ALBUTEROL SULFATE
     Dosage: 4 TIMES DAILY AS NEEDED
     Route: 055
  16. ARIPIPRAZOLE [Concomitant]
     Active Substance: ARIPIPRAZOLE
     Indication: Depression
     Dates: start: 2017
  17. TRAZODONE [Concomitant]
     Active Substance: TRAZODONE HYDROCHLORIDE
     Dosage: BEDTIME
     Dates: start: 2017
  18. PRIMIDONE [Concomitant]
     Active Substance: PRIMIDONE
     Indication: Tremor
     Dosage: 150 MG AT BEDTIME
     Route: 048
     Dates: start: 2019
  19. PRIMIDONE [Concomitant]
     Active Substance: PRIMIDONE
     Indication: Multiple sclerosis
     Route: 048
     Dates: start: 2017
  20. VITAMIN D3 [Concomitant]
     Active Substance: CHOLECALCIFEROL
     Indication: Multiple sclerosis
     Route: 048
     Dates: start: 2019
  21. AMANTADINE [Concomitant]
     Active Substance: AMANTADINE
     Indication: Multiple sclerosis
     Dosage: KEEP AWAKE?TAKE IN MORNING
     Route: 048
     Dates: start: 201906
  22. AMANTADINE [Concomitant]
     Active Substance: AMANTADINE
     Route: 048
     Dates: start: 2018
  23. MARINOL [Concomitant]
     Active Substance: DRONABINOL
     Indication: Pain
     Dosage: ONGOING YES
  24. SEROQUEL [Concomitant]
     Active Substance: QUETIAPINE FUMARATE
     Indication: Post-traumatic stress disorder
     Dosage: MENTAL ILLNESS
     Route: 048
  25. SEROQUEL [Concomitant]
     Active Substance: QUETIAPINE FUMARATE
     Route: 048
     Dates: start: 2020
  26. BACLOFEN [Concomitant]
     Active Substance: BACLOFEN
     Indication: Muscle spasms
     Route: 048
  27. BACLOFEN [Concomitant]
     Active Substance: BACLOFEN
     Dosage: THREE 10 MG PILLS AT ONCE
     Route: 048
     Dates: start: 202011
  28. ALLEGRA [Concomitant]
     Active Substance: FEXOFENADINE HYDROCHLORIDE
     Indication: Hypersensitivity
     Route: 048
  29. ALLEGRA [Concomitant]
     Active Substance: FEXOFENADINE HYDROCHLORIDE
     Indication: Hypersensitivity
     Route: 048
     Dates: start: 202006
  30. CALTRATE [Concomitant]
     Active Substance: CALCIUM CARBONATE
     Indication: Gastric bypass
     Dosage: 600+D3 2 A DAY
     Route: 048
  31. TROKENDI XR [Concomitant]
     Active Substance: TOPIRAMATE
     Indication: Migraine
     Route: 048
     Dates: start: 2016
  32. TROKENDI XR [Concomitant]
     Active Substance: TOPIRAMATE
     Route: 048
     Dates: start: 2018
  33. MARINOL [Concomitant]
     Active Substance: DRONABINOL
     Indication: Nausea
     Route: 048
     Dates: start: 2014
  34. MARINOL [Concomitant]
     Active Substance: DRONABINOL
     Indication: Pain
  35. DRONABINOL [Concomitant]
     Active Substance: DRONABINOL
     Indication: Pain
     Dosage: TAKES EVERY 4 HOURS
  36. DRONABINOL [Concomitant]
     Active Substance: DRONABINOL
     Route: 048

REACTIONS (32)
  - Pain [Unknown]
  - Bradycardia [Recovered/Resolved]
  - Occult blood positive [Unknown]
  - Cataract [Not Recovered/Not Resolved]
  - Muscular weakness [Recovered/Resolved]
  - Pain in extremity [Recovered/Resolved]
  - Localised infection [Not Recovered/Not Resolved]
  - Pruritus [Not Recovered/Not Resolved]
  - Erythema [Not Recovered/Not Resolved]
  - Rhinorrhoea [Not Recovered/Not Resolved]
  - Cough [Not Recovered/Not Resolved]
  - Oropharyngeal pain [Recovered/Resolved]
  - Influenza [Not Recovered/Not Resolved]
  - Fall [Unknown]
  - Weight decreased [Unknown]
  - Throat tightness [Unknown]
  - Dyskinesia [Not Recovered/Not Resolved]
  - Musculoskeletal stiffness [Not Recovered/Not Resolved]
  - Blood glucose increased [Recovering/Resolving]
  - Drug ineffective [Unknown]
  - Tremor [Recovered/Resolved]
  - Sensory disturbance [Not Recovered/Not Resolved]
  - Asthenia [Recovered/Resolved]
  - Wrong technique in product usage process [Unknown]
  - Amnesia [Recovered/Resolved]
  - Gait disturbance [Not Recovered/Not Resolved]
  - Joint dislocation [Not Recovered/Not Resolved]
  - Tendon rupture [Not Recovered/Not Resolved]
  - Hallucination [Not Recovered/Not Resolved]
  - Mental disorder [Not Recovered/Not Resolved]
  - Bipolar disorder [Not Recovered/Not Resolved]
  - Colitis [Not Recovered/Not Resolved]

NARRATIVE: CASE EVENT DATE: 20190101
